FAERS Safety Report 12373996 (Version 1)
Quarter: 2016Q2

REPORT INFORMATION
  Report Type: Spontaneous
  Country: GB (occurrence: GB)
  Receive Date: 20160517
  Receipt Date: 20160517
  Transmission Date: 20160815
  Serious: Yes (Other)
  Sender: FDA-Public Use
  Company Number: GB-SUN PHARMACEUTICAL INDUSTRIES LTD-2016RR-116638

PATIENT

DRUGS (2)
  1. PARACETAMOL [Suspect]
     Active Substance: ACETAMINOPHEN
     Indication: SUICIDE ATTEMPT
     Dosage: DOSAGE FORM: UNSPECIFIED, 80 PARACETAMOL
     Route: 065
  2. RISPERIDONE. [Suspect]
     Active Substance: RISPERIDONE
     Indication: SCHIZOAFFECTIVE DISORDER
     Dosage: DOSAGE FORM: UNSPECIFIED
     Route: 065
     Dates: start: 20020707, end: 20020831

REACTIONS (7)
  - Sluggishness [Unknown]
  - Swelling face [Unknown]
  - Suicide attempt [Unknown]
  - Depressed mood [Unknown]
  - Paranoia [Unknown]
  - Abnormal behaviour [Unknown]
  - Delusion [Unknown]
